FAERS Safety Report 6836534-X (Version None)
Quarter: 2010Q3

REPORT INFORMATION
  Report Type: 
  Country: None (occurrence: None)
  Receive Date: 20100708
  Receipt Date: 20100623
  Transmission Date: 20110219
  Serious: Yes (Hospitalization, Other)
  Sender: FDA-Public Use
  Company Number: RB-10696-2010

PATIENT
  Age: 49 Year
  Sex: Male

DRUGS (1)
  1. SUBOXONE [Suspect]
     Indication: DRUG DEPENDENCE
     Dosage: 8 MG BID, SUBLINGUAL
     Route: 060
     Dates: start: 20080801

REACTIONS (2)
  - CHEST DISCOMFORT [None]
  - DRUG DEPENDENCE [None]
